FAERS Safety Report 16469762 (Version 1)
Quarter: 2019Q3

REPORT INFORMATION
  Report Type: Spontaneous
  Country: US (occurrence: US)
  Receive Date: 20190623
  Receipt Date: 20190623
  Transmission Date: 20191004
  Serious: Yes (Disabling)
  Sender: FDA-Public Use
  Company Number: None

PATIENT
  Age: 38 Year
  Sex: Male
  Weight: 99 kg

DRUGS (1)
  1. CYCLOBENZAPRINE. [Suspect]
     Active Substance: CYCLOBENZAPRINE
     Indication: MUSCLE SPASMS
     Dosage: ?          QUANTITY:1 TABLET(S);?
     Route: 048

REACTIONS (8)
  - Drug hypersensitivity [None]
  - Paraesthesia [None]
  - Spinal disorder [None]
  - Therapeutic response changed [None]
  - Pain [None]
  - Manufacturing materials issue [None]
  - Irritability [None]
  - Drug interaction [None]

NARRATIVE: CASE EVENT DATE: 20181012
